FAERS Safety Report 8407415 (Version 4)
Quarter: 2012Q4

REPORT INFORMATION
  Report Type: 
  Country: FR (occurrence: FR)
  Receive Date: 20120215
  Receipt Date: 20121002
  Transmission Date: 20130627
  Serious: Yes (Death, Hospitalization, Other)
  Sender: FDA-Public Use
  Company Number: FR-CELGENEUS-056-50794-12020771

PATIENT
  Age: 72 Year
  Sex: Female
  Weight: 87 kg

DRUGS (5)
  1. VIDAZA [Suspect]
     Indication: ACUTE MYELOID LEUKAEMIA
     Dosage: 140 Milligram
     Route: 058
     Dates: start: 20111010, end: 20111020
  2. VIDAZA [Suspect]
     Dosage: 100 Milligram
     Route: 058
     Dates: start: 20120110, end: 20120118
  3. ROCEPHINE [Concomitant]
     Indication: DRUG USE FOR UNKNOWN INDICATION
     Dosage: 2 Gram
     Route: 065
     Dates: start: 20120118
  4. ROCEPHINE [Concomitant]
     Dosage: 1 Gram
     Route: 065
  5. THEOPHYLLINE [Concomitant]
     Indication: DRUG USE FOR UNKNOWN INDICATION
     Route: 065

REACTIONS (4)
  - Acute myeloid leukaemia [Fatal]
  - Thrombocytopenia [Fatal]
  - Pyrexia [Unknown]
  - Treatment failure [Not Recovered/Not Resolved]
